FAERS Safety Report 9275354 (Version 2)
Quarter: 2013Q3

REPORT INFORMATION
  Report Type: Spontaneous
  Country: US (occurrence: None)
  Receive Date: 20130214
  Receipt Date: 20130828
  Transmission Date: 20140515
  Serious: Yes (Other)
  Sender: FDA-Public Use
  Company Number: 54973 AE # 1224

PATIENT
  Age: 4 Year
  Sex: Male

DRUGS (1)
  1. HYLANDS COLD N COUGH 4 KIDS [Suspect]
     Indication: NASOPHARYNGITIS
     Dosage: 1/2 TSP
     Route: 048

REACTIONS (7)
  - Pruritus [None]
  - Lip swelling [None]
  - Eyelid oedema [None]
  - Urticaria [None]
  - Pharyngeal erythema [None]
  - Pharyngeal oedema [None]
  - Hypersensitivity [None]
